FAERS Safety Report 5739057-4 (Version None)
Quarter: 2008Q2

REPORT INFORMATION
  Report Type: 
  Country: None (occurrence: None)
  Receive Date: 20080515
  Receipt Date: 20080505
  Transmission Date: 20081010
  Serious: Yes (Hospitalization)
  Sender: FDA-Public Use
  Company Number: CL-ABBOTT-08P-034-0450683-00

PATIENT
  Sex: Male
  Weight: 72 kg

DRUGS (4)
  1. KALETRA [Suspect]
     Indication: HIV INFECTION
     Route: 048
     Dates: start: 20071201
  2. KALETRA [Suspect]
     Dates: start: 20070223, end: 20071201
  3. ZIDOVUDINE [Concomitant]
     Indication: HIV INFECTION
     Route: 048
     Dates: start: 20070223
  4. LAMIVUDINE [Concomitant]
     Indication: HIV INFECTION
     Route: 048
     Dates: start: 20070223

REACTIONS (4)
  - GENERAL PHYSICAL HEALTH DETERIORATION [None]
  - ODYNOPHAGIA [None]
  - PRODUCTIVE COUGH [None]
  - PYREXIA [None]
